FAERS Safety Report 21585452 (Version 1)
Quarter: 2022Q4

REPORT INFORMATION
  Report Type: Report from Study
  Country: CA (occurrence: CA)
  Receive Date: 20221111
  Receipt Date: 20221111
  Transmission Date: 20230112
  Serious: Yes (Other)
  Sender: FDA-Public Use
  Company Number: CA-ABBVIE-4195068

PATIENT
  Sex: Male

DRUGS (1)
  1. HUMIRA [Suspect]
     Active Substance: ADALIMUMAB
     Indication: Ankylosing spondylitis
     Dosage: FORM STRENGTH: 40 MILLIGRAM
     Route: 058
     Dates: start: 20120913

REACTIONS (6)
  - Acute coronary syndrome [Unknown]
  - Axial spondyloarthritis [Unknown]
  - Iritis [Unknown]
  - Blepharitis [Unknown]
  - Vitreous floaters [Unknown]
  - Dry eye [Unknown]
